FAERS Safety Report 8624714-2 (Version None)
Quarter: 2012Q3

REPORT INFORMATION
  Report Type: 
  Country: None (occurrence: None)
  Receive Date: 20120810
  Receipt Date: 20120725
  Transmission Date: 20120928
  Serious: Yes (Death, Other)
  Sender: FDA-Public Use
  Company Number: 2012MA009290

PATIENT
  Age: 48 Year
  Sex: Female

DRUGS (5)
  1. MEPERIDINE HCL [Concomitant]
  2. CIMETIDINE [Concomitant]
  3. FEVERALL [Suspect]
     Dosage: 32.50 G;QD;PO
     Route: 048
  4. AMPICILLIN [Concomitant]
  5. DIAZEPAM [Concomitant]

REACTIONS (6)
  - TOXICITY TO VARIOUS AGENTS [None]
  - METABOLIC ACIDOSIS [None]
  - ACUTE HEPATIC FAILURE [None]
  - HYPOGLYCAEMIA [None]
  - HEPATOTOXICITY [None]
  - HEPATIC NECROSIS [None]
